FAERS Safety Report 24093204 (Version 2)
Quarter: 2024Q3

REPORT INFORMATION
  Report Type: Spontaneous
  Country: US (occurrence: US)
  Receive Date: 20240715
  Receipt Date: 20240724
  Transmission Date: 20241016
  Serious: No
  Sender: JOHNSON AND JOHNSON
  Company Number: US-JNJFOC-20240737431

PATIENT
  Age: 78 Year
  Sex: Female
  Weight: 81.6 kg

DRUGS (23)
  1. OPSUMIT [Suspect]
     Active Substance: MACITENTAN
     Indication: Product used for unknown indication
     Route: 048
  2. TREPROSTINIL SODIUM [Suspect]
     Active Substance: TREPROSTINIL SODIUM
     Indication: Pulmonary arterial hypertension
     Dosage: CONCENTRATION 0.6 MG/ML
     Route: 055
     Dates: start: 20210420
  3. CRESTOR [Concomitant]
     Active Substance: ROSUVASTATIN CALCIUM
  4. FISH OIL [Concomitant]
     Active Substance: FISH OIL
  5. LEVOTHYROXINE SODIUM [Concomitant]
     Active Substance: LEVOTHYROXINE SODIUM
  6. COENZYME Q10 [Concomitant]
     Active Substance: DIETARY SUPPLEMENT\UBIDECARENONE
  7. SINGULAIR [Concomitant]
     Active Substance: MONTELUKAST SODIUM
  8. ACETAMINOPHEN\HYDROCODONE [Concomitant]
     Active Substance: ACETAMINOPHEN\HYDROCODONE
  9. FOLIC ACID [Concomitant]
     Active Substance: FOLIC ACID
  10. PANTOPRAZOLE SODIUM [Concomitant]
     Active Substance: PANTOPRAZOLE SODIUM
  11. ELIQUIS [Concomitant]
     Active Substance: APIXABAN
  12. FENOFIBRATE [Concomitant]
     Active Substance: FENOFIBRATE
  13. ALBUTEROL SULFATE [Concomitant]
     Active Substance: ALBUTEROL SULFATE
  14. CLONIDINE [Concomitant]
     Active Substance: CLONIDINE
  15. IRON [Concomitant]
     Active Substance: IRON
  16. NORVASC [Concomitant]
     Active Substance: AMLODIPINE BESYLATE
  17. METHOTREXATE [Concomitant]
     Active Substance: METHOTREXATE
  18. ZETIA [Concomitant]
     Active Substance: EZETIMIBE
  19. SPIRONOLACTONE [Concomitant]
     Active Substance: SPIRONOLACTONE
  20. OXYGEN [Concomitant]
     Active Substance: OXYGEN
  21. TORSEMIDE [Concomitant]
     Active Substance: TORSEMIDE
  22. HYDRALAZINE HCL [Concomitant]
     Active Substance: HYDRALAZINE HYDROCHLORIDE
  23. DAILY VITE [ASCORBIC ACID;CALCIUM PANTOTHENATE;COLECALCIFEROL;CYANOCOB [Concomitant]

REACTIONS (7)
  - Fluid retention [Unknown]
  - Wrong technique in product usage process [Unknown]
  - Oedema [Unknown]
  - Illness [Unknown]
  - Nausea [Unknown]
  - Decreased appetite [Unknown]
  - Eating disorder [Unknown]
